FAERS Safety Report 24320924 (Version 4)
Quarter: 2025Q1

REPORT INFORMATION
  Report Type: Report from Study
  Country: US (occurrence: US)
  Receive Date: 20240915
  Receipt Date: 20250128
  Transmission Date: 20250408
  Serious: Yes (Hospitalization)
  Sender: SUNOVION
  Company Number: US-SUMITOMO PHARMA SWITZERLAND GMBH-2024SPA002013

PATIENT

DRUGS (3)
  1. ORGOVYX [Suspect]
     Active Substance: RELUGOLIX
     Indication: Prostate cancer
     Dosage: 360 MG, SINGLE (ONE TIME DOSE)
     Route: 048
     Dates: start: 20240121, end: 20240121
  2. ORGOVYX [Suspect]
     Active Substance: RELUGOLIX
     Dosage: 120 MG, QD
     Route: 048
     Dates: start: 20240122
  3. NUBEQA [Concomitant]
     Active Substance: DAROLUTAMIDE
     Route: 065

REACTIONS (5)
  - Coronary arterial stent insertion [Unknown]
  - Respiratory tract infection [Unknown]
  - Glycosylated haemoglobin increased [Unknown]
  - Blood calcium increased [Recovered/Resolved]
  - Blood triglycerides increased [Unknown]
